FAERS Safety Report 5101976-X (Version None)
Quarter: 2006Q3

REPORT INFORMATION
  Report Type: 
  Country: None (occurrence: None)
  Receive Date: 20060907
  Receipt Date: 20060824
  Transmission Date: 20061208
  Serious: Yes (Life-Threatening, Hospitalization)
  Sender: FDA-Public Use
  Company Number: 228233

PATIENT
  Age: 66 Year
  Sex: Female
  Weight: 37.2 kg

DRUGS (5)
  1. ERLOTINIB (ERLOTINIB) TABLET [Suspect]
     Indication: COLORECTAL CANCER
     Dosage: 100 MG, QD, ORAL
     Route: 048
     Dates: start: 20060502, end: 20060619
  2. AVASTIN [Suspect]
     Indication: DRUG USE FOR UNKNOWN INDICATION
     Dosage: 5 MG/KG, QD, INTRAVENOUS
     Route: 042
     Dates: start: 20060502, end: 20060621
  3. FLUOROURACIL [Suspect]
     Indication: COLORECTAL CANCER
     Dosage: 400 MG/M2, QD, INTRAVENOUS; 600 MG/M2, INTRAVENOUS
     Route: 042
     Dates: start: 20060502, end: 20060621
  4. LEUCOVORIN CALCIUM [Suspect]
     Indication: COLORECTAL CANCER
     Dosage: 200 MG/M2, QD, INTRAVENOUS
     Route: 042
     Dates: start: 20060502, end: 20060621
  5. OXALIPLATIN [Suspect]
     Indication: COLORECTAL CANCER
     Dosage: 85 MG/M2, QD, INTRAVENOUS
     Route: 042
     Dates: start: 20060502, end: 20060621

REACTIONS (5)
  - ARRHYTHMIA SUPRAVENTRICULAR [None]
  - BLOOD PRESSURE DECREASED [None]
  - FEBRILE NEUTROPENIA [None]
  - HEART RATE INCREASED [None]
  - PALPITATIONS [None]
